FAERS Safety Report 7563763-2 (Version None)
Quarter: 2011Q2

REPORT INFORMATION
  Report Type: 
  Country: None (occurrence: None)
  Receive Date: 20110622
  Receipt Date: 20110607
  Transmission Date: 20111010
  Serious: Yes (Hospitalization)
  Sender: FDA-Public Use
  Company Number: GB-WATSON-2011-08397

PATIENT
  Age: 47 Year
  Sex: Female
  Weight: 102 kg

DRUGS (7)
  1. CLOZAPINE [Suspect]
     Indication: SCHIZOPHRENIA
     Dosage: 150 MG, BID
     Route: 048
     Dates: start: 20080909, end: 20081005
  2. SERETIDE [Concomitant]
     Indication: PRODUCT USED FOR UNKNOWN INDICATION
     Route: 065
  3. SERTRALINE HYDROCHLORIDE [Suspect]
     Indication: DEPRESSION
     Dosage: 200 MG, DAILY
     Route: 048
  4. LAMOTRIGINE [Concomitant]
     Indication: AFFECTIVE DISORDER
     Dosage: 150 MG, BID
     Route: 048
  5. CLONAZEPAM [Concomitant]
     Indication: PSYCHOTIC DISORDER
     Dosage: 1 MG, UNK
     Route: 048
  6. DEPAKOTE [Concomitant]
     Indication: AFFECTIVE DISORDER
     Dosage: 1000 MG, BID
     Route: 048
  7. QUETIAPINE [Concomitant]
     Indication: PSYCHOTIC DISORDER
     Dosage: 200 MG, BID
     Route: 048

REACTIONS (8)
  - BODY TEMPERATURE INCREASED [None]
  - C-REACTIVE PROTEIN INCREASED [None]
  - TACHYPNOEA [None]
  - ASTHMA [None]
  - TACHYCARDIA [None]
  - OXYGEN SATURATION DECREASED [None]
  - LOWER RESPIRATORY TRACT INFECTION [None]
  - MONOCYTE COUNT INCREASED [None]
